FAERS Safety Report 17062032 (Version 1)
Quarter: 2019Q4

REPORT INFORMATION
  Report Type: Spontaneous
  Country: US (occurrence: US)
  Receive Date: 20191121
  Receipt Date: 20191121
  Transmission Date: 20200122
  Serious: Yes (Other)
  Sender: FDA-Public Use
  Company Number: US-ROCHE-2472838

PATIENT
  Sex: Female

DRUGS (3)
  1. LYNPARZA [Concomitant]
     Active Substance: OLAPARIB
  2. DOXILIN [Concomitant]
  3. AVASTIN [Suspect]
     Active Substance: BEVACIZUMAB
     Indication: PRODUCT USED FOR UNKNOWN INDICATION
     Route: 042

REACTIONS (1)
  - Ascites [Unknown]
